FAERS Safety Report 8519491-X (Version None)
Quarter: 2012Q3

REPORT INFORMATION
  Report Type: 
  Country: None (occurrence: None)
  Receive Date: 20120718
  Receipt Date: 20120713
  Transmission Date: 20120928
  Serious: Yes (Other)
  Sender: FDA-Public Use
  Company Number: US-PFIZER INC-2012169735

PATIENT
  Sex: Female

DRUGS (3)
  1. GABAPENTIN [Suspect]
     Dosage: UNK
  2. TRAMADOL HCL [Interacting]
     Dosage: UNK
  3. LYRICA [Interacting]
     Dosage: UNK

REACTIONS (2)
  - CONVULSION [None]
  - DRUG INTERACTION [None]
